FAERS Safety Report 9700643 (Version 6)
Quarter: 2014Q2

REPORT INFORMATION
  Report Type: Report from Study
  Country: CA (occurrence: CA)
  Receive Date: 20131121
  Receipt Date: 20140529
  Transmission Date: 20141212
  Serious: Yes (Hospitalization, Other)
  Sender: FDA-Public Use
  Company Number: PHHY2013CA131370

PATIENT
  Sex: Female

DRUGS (2)
  1. SANDOSTATIN (OCTREOTIDE ACETATE) [Suspect]
     Indication: ILEOSTOMY
     Dosage: UNK UG, BID
     Route: 058
  2. SANDOSTATIN LAR [Suspect]
     Indication: ILEOSTOMY
     Dosage: 30 MG, QMO
     Route: 030
     Dates: start: 20131116, end: 20140427

REACTIONS (7)
  - Skin discolouration [Unknown]
  - Intestinal obstruction [Unknown]
  - Injection site pain [Unknown]
  - Post procedural complication [Unknown]
  - Gait disturbance [Unknown]
  - Asthenia [Unknown]
  - Fatigue [Unknown]
